FAERS Safety Report 24680399 (Version 1)
Quarter: 2024Q4

REPORT INFORMATION
  Report Type: Spontaneous
  Country: US (occurrence: US)
  Receive Date: 20241129
  Receipt Date: 20241129
  Transmission Date: 20250115
  Serious: No
  Sender: ROCHE
  Company Number: US-ROCHE-10000139692

PATIENT
  Sex: Female

DRUGS (6)
  1. TAMIFLU [Suspect]
     Active Substance: OSELTAMIVIR PHOSPHATE
     Indication: Product used for unknown indication
     Route: 048
     Dates: start: 20180101
  2. XYREM [Suspect]
     Active Substance: SODIUM OXYBATE
     Indication: Narcolepsy
     Route: 048
     Dates: start: 20050620, end: 20211117
  3. XYREM [Suspect]
     Active Substance: SODIUM OXYBATE
     Indication: Cataplexy
     Route: 048
     Dates: start: 20220103, end: 20240927
  4. TIRZEPATIDE [Concomitant]
     Active Substance: TIRZEPATIDE
     Dates: start: 20240930
  5. FLUOROURACIL [Concomitant]
     Active Substance: FLUOROURACIL
     Dates: start: 20241031, end: 20241112
  6. TAMSULOSIN HYDROCHLORIDE [Concomitant]
     Active Substance: TAMSULOSIN HYDROCHLORIDE

REACTIONS (1)
  - Drug hypersensitivity [Unknown]
